FAERS Safety Report 4918115-8 (Version None)
Quarter: 2006Q1

REPORT INFORMATION
  Report Type: 
  Country: None (occurrence: None)
  Receive Date: 20060221
  Receipt Date: 20050826
  Transmission Date: 20060701
  Serious: Yes (Hospitalization)
  Sender: FDA-Public Use
  Company Number: US-MERCK-0508USA04427

PATIENT
  Age: 55 Year
  Sex: Female
  Weight: 82 kg

DRUGS (22)
  1. VIOXX [Suspect]
     Indication: RHEUMATOID ARTHRITIS
     Route: 048
     Dates: start: 20000101, end: 20040901
  2. ADVAIR DISKUS 100/50 [Concomitant]
     Indication: ASTHMA
     Route: 065
  3. DIOVAN [Concomitant]
     Indication: HYPERTENSION
     Route: 065
     Dates: start: 20020101
  4. [THERAPY UNSPECIFIED] [Concomitant]
     Route: 065
  5. NITROQUICK [Concomitant]
     Indication: CHEST PAIN
     Route: 065
  6. NYSTATIN [Concomitant]
     Route: 065
  7. FOLIC ACID [Concomitant]
     Indication: FIBROMYALGIA
     Route: 065
  8. PREDNISONE [Concomitant]
     Indication: RHEUMATOID ARTHRITIS
     Route: 065
     Dates: start: 20010101
  9. OMNICEF [Concomitant]
     Route: 065
  10. LORAZEPAM [Concomitant]
     Route: 065
  11. HUMIRA [Concomitant]
     Indication: RHEUMATOID ARTHRITIS
     Route: 065
     Dates: end: 20040901
  12. FLONASE [Concomitant]
     Route: 065
  13. ZITHROMAX [Concomitant]
     Route: 065
  14. COMBIVENT [Concomitant]
     Indication: ASTHMA
     Route: 055
  15. ALBUTEROL [Concomitant]
     Indication: ASTHMA
     Route: 055
  16. ASPIRIN [Concomitant]
     Indication: RHEUMATOID ARTHRITIS
     Route: 065
     Dates: start: 20010101
  17. ASPIRIN [Concomitant]
     Indication: ANTICOAGULANT THERAPY
     Route: 065
     Dates: start: 20010101
  18. [THERAPY UNSPECIFIED] [Concomitant]
     Route: 065
  19. [THERAPY UNSPECIFIED] [Concomitant]
     Route: 065
  20. SOMA [Concomitant]
     Indication: RHEUMATOID ARTHRITIS
     Route: 065
  21. CARTIA (DILTIAZEM HYDROCHLORIDE) [Concomitant]
     Indication: HYPERTENSION
     Route: 065
     Dates: start: 20020101
  22. PLAVIX [Concomitant]
     Indication: MYOCARDIAL INFARCTION
     Route: 065
     Dates: start: 20030301, end: 20040101

REACTIONS (18)
  - ARTHRALGIA [None]
  - ASTHMA [None]
  - BACK PAIN [None]
  - BLOOD CHOLESTEROL INCREASED [None]
  - BLOOD PRESSURE INCREASED [None]
  - BLOOD TRIGLYCERIDES INCREASED [None]
  - CEREBROVASCULAR ACCIDENT [None]
  - CHEST PAIN [None]
  - DEEP VEIN THROMBOSIS [None]
  - EMOTIONAL DISTRESS [None]
  - FIBROMYALGIA [None]
  - INTERSTITIAL LUNG DISEASE [None]
  - MYOCARDIAL INFARCTION [None]
  - NECK PAIN [None]
  - PAIN IN EXTREMITY [None]
  - PEPTIC ULCER [None]
  - PLATELET AGGREGATION INCREASED [None]
  - ROAD TRAFFIC ACCIDENT [None]
